FAERS Safety Report 4732552-6 (Version None)
Quarter: 2005Q3

REPORT INFORMATION
  Report Type: 
  Country: None (occurrence: None)
  Receive Date: 20050801
  Receipt Date: 20050714
  Transmission Date: 20060218
  Serious: Yes (Other)
  Sender: FDA-Public Use
  Company Number: 2003BL005190

PATIENT
  Age: 38 Year
  Sex: Female

DRUGS (1)
  1. RETISERT [Suspect]
     Indication: CHOROIDITIS
     Dosage: RIGHT EYE
     Dates: start: 20020717

REACTIONS (9)
  - CORNEAL DISORDER [None]
  - CORNEAL SCAR [None]
  - DESCEMET'S MEMBRANE DISORDER [None]
  - EYE PAIN [None]
  - HEADACHE [None]
  - HYPOTONY OF EYE [None]
  - LACRIMATION INCREASED [None]
  - VISION BLURRED [None]
  - VISUAL ACUITY REDUCED [None]
